FAERS Safety Report 6622184-7 (Version None)
Quarter: 2010Q1

REPORT INFORMATION
  Report Type: 
  Country: None (occurrence: None)
  Receive Date: 20100309
  Receipt Date: 20100223
  Transmission Date: 20100710
  Serious: Yes (Hospitalization)
  Sender: FDA-Public Use
  Company Number: GR-MYLANLABS-2010S1002900

PATIENT
  Age: 66 Year
  Sex: Female

DRUGS (2)
  1. CIPROFLOXACIN [Interacting]
     Indication: PYELONEPHRITIS ACUTE
     Dosage: 1000 MG/DAY
  2. LEVOTHYROXINE SODIUM [Suspect]
     Indication: THYROID HORMONE REPLACEMENT THERAPY
     Dosage: 150 MICROG/DAY

REACTIONS (2)
  - DRUG INTERACTION [None]
  - STEVENS-JOHNSON SYNDROME [None]
